FAERS Safety Report 4597070-7 (Version None)
Quarter: 2005Q1

REPORT INFORMATION
  Report Type: 
  Country: None (occurrence: None)
  Receive Date: 20050301
  Receipt Date: 20050216
  Transmission Date: 20050727
  Serious: Yes (Other)
  Sender: FDA-Public Use
  Company Number: 2005035957

PATIENT
  Age: 65 Year
  Sex: Female

DRUGS (7)
  1. ATORVASTATIN CALCIUM [Suspect]
     Indication: HYPERCHOLESTEROLAEMIA
     Dosage: 10 MG (10 MG, 1 IN 1 D), ORAL
     Route: 048
     Dates: start: 20041201
  2. LISINOPRIL [Concomitant]
  3. BENDROFLUMATHIAZIDE (BENDROFLUMATHIAZIDE) [Concomitant]
  4. ATENOLOL [Concomitant]
  5. GABAPENTIN [Concomitant]
  6. ACETAMINOPHEN [Concomitant]
  7. AMITRIPTYLINE HCL [Concomitant]

REACTIONS (3)
  - ARTHRALGIA [None]
  - ASTHENIA [None]
  - POLYMYALGIA [None]
